FAERS Safety Report 5384335-4 (Version None)
Quarter: 2007Q3

REPORT INFORMATION
  Report Type: 
  Country: None (occurrence: None)
  Receive Date: 20070706
  Receipt Date: 20070427
  Transmission Date: 20080115
  Serious: No
  Sender: FDA-Public Use
  Company Number: PHEH2007US06543

PATIENT
  Age: 82 Year
  Sex: Male

DRUGS (3)
  1. TEKTURNA [Suspect]
     Indication: HYPERTENSION
     Dosage: 150 MG, QD
     Dates: start: 20070401
  2. LISINOPRIL [Suspect]
     Indication: HYPERTENSION
     Dates: start: 20030101
  3. COREG [Suspect]
     Indication: HYPERTENSION
     Dates: start: 20070401

REACTIONS (1)
  - DIZZINESS [None]
